FAERS Safety Report 8804377 (Version 3)
Quarter: 2013Q3

REPORT INFORMATION
  Report Type: Spontaneous
  Country: US (occurrence: US)
  Receive Date: 20120924
  Receipt Date: 20130726
  Transmission Date: 20140515
  Serious: Yes (Hospitalization, Other)
  Sender: FDA-Public Use
  Company Number: US-BAYER-2012-097665

PATIENT
  Age: 20 Year
  Sex: Female

DRUGS (6)
  1. YAZ [Suspect]
  2. YASMIN [Suspect]
  3. ALBUTEROL SULFATE [Concomitant]
     Indication: COUGH
     Dosage: 90 ?G, 2 PUFFS AS DIRECTED
     Dates: start: 20081118
  4. PREDNISONE [Concomitant]
     Indication: COUGH
     Dosage: 20 MG, UNK
     Dates: start: 20081118
  5. XANAX [Concomitant]
     Indication: PANIC ATTACK
     Dosage: 0.5 MG, UNK
  6. PAXIL [Concomitant]
     Indication: ANXIETY

REACTIONS (9)
  - Deep vein thrombosis [None]
  - Pulmonary embolism [None]
  - Injury [None]
  - Thrombosis [None]
  - Pain [None]
  - Emotional distress [None]
  - Anxiety [None]
  - Fear [None]
  - Pain [None]
